FAERS Safety Report 6787833-1 (Version None)
Quarter: 2010Q2

REPORT INFORMATION
  Report Type: 
  Country: None (occurrence: None)
  Receive Date: 20100623
  Receipt Date: 20071212
  Transmission Date: 20101027
  Serious: No
  Sender: FDA-Public Use
  Company Number: US-PFIZER INC-2007064556

PATIENT
  Sex: Female
  Weight: 60 kg

DRUGS (2)
  1. DEPO-PROVERA SUSPENSION/INJ [Suspect]
     Indication: CONTRACEPTION
     Route: 030
  2. LEVAQUIN [Concomitant]

REACTIONS (5)
  - AMENORRHOEA [None]
  - DYSMENORRHOEA [None]
  - METRORRHAGIA [None]
  - SINUSITIS [None]
  - WEIGHT DECREASED [None]
